FAERS Safety Report 7330107-0 (Version None)
Quarter: 2011Q1

REPORT INFORMATION
  Report Type: 
  Country: None (occurrence: None)
  Receive Date: 20110303
  Receipt Date: 20110224
  Transmission Date: 20110831
  Serious: Yes (Hospitalization)
  Sender: FDA-Public Use
  Company Number: NL-MEDIMMUNE-MEDI-0012379

PATIENT
  Sex: Male
  Weight: 9.15 kg

DRUGS (4)
  1. SODIUM CHLORIDE [Concomitant]
     Route: 045
  2. PARACETAMOL [Concomitant]
  3. SYNAGIS [Suspect]
     Route: 030
     Dates: start: 20100127, end: 20101231
  4. SALBUTAMOL [Concomitant]

REACTIONS (1)
  - SENSE OF OPPRESSION [None]
